FAERS Safety Report 8396901-2 (Version None)
Quarter: 2012Q2

REPORT INFORMATION
  Report Type: 
  Country: None (occurrence: None)
  Receive Date: 20120530
  Receipt Date: 20120516
  Transmission Date: 20120825
  Serious: No
  Sender: FDA-Public Use
  Company Number: US-ASTRAZENECA-2012SE31673

PATIENT
  Age: 66 Year
  Sex: Male
  Weight: 77.1 kg

DRUGS (2)
  1. ENTOCORT EC [Suspect]
     Indication: COLITIS MICROSCOPIC
     Route: 048
  2. ENTOCORT EC [Suspect]
     Route: 048

REACTIONS (2)
  - DYSPNOEA [None]
  - OFF LABEL USE [None]
